FAERS Safety Report 6460242-0 (Version None)
Quarter: 2009Q4

REPORT INFORMATION
  Report Type: 
  Country: None (occurrence: None)
  Receive Date: 20091130
  Receipt Date: 20091120
  Transmission Date: 20100525
  Serious: Yes (Hospitalization)
  Sender: FDA-Public Use
  Company Number: FR-WYE-H12286509

PATIENT
  Sex: Female
  Weight: 66 kg

DRUGS (2)
  1. NERATINIB [Suspect]
     Indication: NEOPLASM
     Route: 048
     Dates: start: 20090928
  2. TEMSIROLIMUS [Suspect]
     Indication: NEOPLASM
     Route: 042
     Dates: start: 20090928

REACTIONS (1)
  - PULMONARY HYPERTENSION [None]
